FAERS Safety Report 9225823 (Version 1)
Quarter: 2013Q1

REPORT INFORMATION
  Report Type: Spontaneous
  Country: US (occurrence: None)
  Receive Date: 20120924
  Receipt Date: 20120924
  Transmission Date: 20140127
  Serious: No
  Sender: FDA-Public Use
  Company Number: 2012STOOO472

PATIENT
  Age: 26 Year
  Sex: Female

DRUGS (1)
  1. MATULANE CAPSULES [Suspect]
     Indication: BRAIN NEOPLASM
     Route: 048
     Dates: start: 20120302, end: 201205

REACTIONS (1)
  - Disease progression [None]
